FAERS Safety Report 11542958 (Version 1)
Quarter: 2015Q3

REPORT INFORMATION
  Report Type: Spontaneous
  Country: GB (occurrence: GB)
  Receive Date: 20150923
  Receipt Date: 20150923
  Transmission Date: 20151125
  Serious: Yes (Other)
  Sender: FDA-Public Use
  Company Number: GB-BAYER-2015-424405

PATIENT
  Sex: Female

DRUGS (6)
  1. SOLIFENACIN [Concomitant]
     Active Substance: SOLIFENACIN
     Dosage: 10 MG, QOD
  2. VAGIFEM [Concomitant]
     Active Substance: ESTRADIOL
  3. ACETYLSALICYLIC ACID (} 100 MG) [Suspect]
     Active Substance: ASPIRIN
     Indication: TENSION HEADACHE
     Dosage: 2 DF, UNK
     Route: 048
     Dates: start: 19900503, end: 19900503
  4. BUPRENORPHINE. [Concomitant]
     Active Substance: BUPRENORPHINE
  5. DULOXETINE. [Concomitant]
     Active Substance: DULOXETINE
     Dosage: 120 MG, QOD
  6. PARACETAMOL [Concomitant]
     Active Substance: ACETAMINOPHEN

REACTIONS (7)
  - Nasal inflammation [Recovered/Resolved]
  - Drug hypersensitivity [Unknown]
  - Palpitations [Recovered/Resolved]
  - Asthma [Recovered/Resolved]
  - Somnolence [Recovered/Resolved]
  - Wheezing [Recovered/Resolved]
  - Rash [Recovered/Resolved]
